FAERS Safety Report 11640718 (Version 1)
Quarter: 2015Q4

REPORT INFORMATION
  Report Type: Other
  Country: GB (occurrence: GB)
  Receive Date: 20151019
  Receipt Date: 20151019
  Transmission Date: 20160304
  Serious: Yes (Other)
  Sender: FDA-Public Use
  Company Number: GB-MYLANLABS-2015M1034149

PATIENT

DRUGS (2)
  1. SUPPLEMIN C [Concomitant]
     Dosage: UNK
  2. MIRTAZAPINE. [Suspect]
     Active Substance: MIRTAZAPINE
     Indication: DEPRESSION
     Dosage: 15 MG, UNK
     Route: 048
     Dates: start: 20110501, end: 20150815

REACTIONS (5)
  - Irritability [Recovered/Resolved]
  - Anger [Recovered/Resolved]
  - Memory impairment [Recovered/Resolved]
  - Mood swings [Recovered/Resolved]
  - Lactose intolerance [Not Recovered/Not Resolved]

NARRATIVE: CASE EVENT DATE: 20111001
